FAERS Safety Report 17968605 (Version 2)
Quarter: 2020Q3

REPORT INFORMATION
  Report Type: Report from Study
  Country: US (occurrence: US)
  Receive Date: 20200701
  Receipt Date: 20200709
  Transmission Date: 20201103
  Serious: No
  Sender: FDA-Public Use
  Company Number: US-BRISTOL-MYERS SQUIBB COMPANY-BMS-2020-052194

PATIENT
  Age: 38 Year
  Sex: Male
  Weight: 103.8 kg

DRUGS (1)
  1. APIXABAN [Suspect]
     Active Substance: APIXABAN
     Indication: CEREBROVASCULAR ACCIDENT PROPHYLAXIS
     Dosage: 5 MG, PRESCRIBED TWICE DAILY, ONLY TWO DOSES TAKEN BEFORE DISCONTINUED
     Route: 065
     Dates: start: 20200627, end: 20200628

REACTIONS (2)
  - Hypersensitivity [Unknown]
  - Urticaria [Recovering/Resolving]

NARRATIVE: CASE EVENT DATE: 20200628
